FAERS Safety Report 10034369 (Version 1)
Quarter: 2014Q1

REPORT INFORMATION
  Report Type: Spontaneous
  Country: US (occurrence: None)
  Receive Date: 20140324
  Receipt Date: 20140324
  Transmission Date: 20141002
  Serious: Yes (Other)
  Sender: FDA-Public Use
  Company Number: None

PATIENT
  Age: 63 Year
  Sex: Female
  Weight: 72.58 kg

DRUGS (4)
  1. LEVAQUIN [Suspect]
     Indication: BRONCHITIS
     Route: 048
     Dates: start: 20131227, end: 20140109
  2. LOVAZA OMEGA 3 [Concomitant]
  3. OTC OMEGA 3 [Concomitant]
  4. FEM HRT [Concomitant]

REACTIONS (1)
  - Synovitis [None]
